FAERS Safety Report 5172142-7 (Version None)
Quarter: 2006Q4

REPORT INFORMATION
  Report Type: 
  Country: None (occurrence: None)
  Receive Date: 20061205
  Receipt Date: 20061011
  Transmission Date: 20070319
  Serious: Yes (Life-Threatening, Hospitalization)
  Sender: FDA-Public Use
  Company Number: 2005076772

PATIENT
  Age: 49 Year
  Sex: Female
  Weight: 92.5338 kg

DRUGS (17)
  1. ATORVASTATIN CALCIUM [Suspect]
     Indication: DYSLIPIDAEMIA
     Dosage: 10 MG (10 MG, 1 IN 1 D), ORAL
     Route: 048
     Dates: start: 20041117
  2. SPIRONOLACTONE [Concomitant]
  3. ATENOLOL [Concomitant]
  4. PANTOPRAZOLE SODIUM [Concomitant]
  5. BUSPIRONE HCL [Concomitant]
  6. VENLAFAXINE HCL [Concomitant]
  7. SEROQUEL [Concomitant]
  8. MELOXICAM [Concomitant]
  9. ACETAMINOPHEN [Concomitant]
  10. CALCIUM (CALCIUM) [Concomitant]
  11. VITAMIN D [Concomitant]
  12. MAGNESIUM (MAGNESIUM) [Concomitant]
  13. LITHOBID [Concomitant]
  14. FLUOXETINE [Concomitant]
  15. ESCITALOPRAM OXALATE [Concomitant]
  16. CALCIUM CHANNEL BLOCKERS (CALCIUM CHANNEL BLOCKERS) [Concomitant]
  17. DIPHENOXYLATE (DIPHENOXYLATE) [Concomitant]

REACTIONS (7)
  - ASTHENIA [None]
  - CHEST DISCOMFORT [None]
  - CONDITION AGGRAVATED [None]
  - DEPRESSION [None]
  - HYPERTENSION [None]
  - MULTIPLE DRUG OVERDOSE INTENTIONAL [None]
  - SUICIDE ATTEMPT [None]
